FAERS Safety Report 5433018-0 (Version None)
Quarter: 2007Q3

REPORT INFORMATION
  Report Type: 
  Country: None (occurrence: None)
  Receive Date: 20070831
  Receipt Date: 20070717
  Transmission Date: 20080115
  Serious: No
  Sender: FDA-Public Use
  Company Number: A0664151A

PATIENT
  Age: 32 Year
  Sex: Female

DRUGS (2)
  1. ALLI [Suspect]
     Indication: DRUG USE FOR UNKNOWN INDICATION
  2. ULTRA MEGA(MVI) [Concomitant]

REACTIONS (4)
  - LIP SWELLING [None]
  - NONSPECIFIC REACTION [None]
  - PRURITUS [None]
  - SWELLING FACE [None]
